FAERS Safety Report 5386318-7 (Version None)
Quarter: 2007Q3

REPORT INFORMATION
  Report Type: 
  Country: None (occurrence: None)
  Receive Date: 20070710
  Receipt Date: 20070625
  Transmission Date: 20080115
  Serious: Yes (Hospitalization)
  Sender: FDA-Public Use
  Company Number: US020446

PATIENT
  Age: 48 Year
  Sex: Male

DRUGS (1)
  1. ACTIQ [Suspect]
     Dosage: 800 UG BUCCAL
     Route: 002

REACTIONS (4)
  - DELUSION [None]
  - HALLUCINATION [None]
  - TACHYCARDIA [None]
  - TREMOR [None]
